FAERS Safety Report 11225236 (Version 1)
Quarter: 2015Q2

REPORT INFORMATION
  Report Type: Spontaneous
  Country: IT (occurrence: IT)
  Receive Date: 20150629
  Receipt Date: 20150629
  Transmission Date: 20150821
  Serious: Yes (Hospitalization)
  Sender: FDA-Public Use
  Company Number: IT-BAYER-2015-365377

PATIENT
  Age: 83 Year
  Sex: Male

DRUGS (7)
  1. CARDIOASPIRIN [Suspect]
     Active Substance: ASPIRIN
     Dosage: 100 MG, QD
     Route: 048
     Dates: start: 20140101, end: 20141009
  2. TRIATEC [Concomitant]
     Active Substance: RAMIPRIL
  3. KANRENOL [Concomitant]
     Active Substance: CANRENOATE POTASSIUM
  4. LASIX [Concomitant]
     Active Substance: FUROSEMIDE
  5. COUMADIN [Suspect]
     Active Substance: WARFARIN SODIUM
     Indication: THROMBOSIS
     Dosage: 38,75 MILLIGRAMS, WEEKLY
     Route: 048
     Dates: start: 20111121, end: 20140909
  6. CARDICOR [Concomitant]
     Active Substance: BISOPROLOL
  7. SIVASTIN [Concomitant]
     Active Substance: SIMVASTATIN

REACTIONS (1)
  - Haemorrhage [Recovering/Resolving]

NARRATIVE: CASE EVENT DATE: 20140910
